FAERS Safety Report 6782495-1 (Version None)
Quarter: 2010Q2

REPORT INFORMATION
  Report Type: 
  Country: None (occurrence: None)
  Receive Date: 20100616
  Receipt Date: 20100607
  Transmission Date: 20101027
  Serious: Yes (Hospitalization)
  Sender: FDA-Public Use
  Company Number: 2010AL003322

PATIENT
  Age: 58 Year
  Sex: Male

DRUGS (5)
  1. AMANTADINE HYDROCHLORIDE [Suspect]
     Indication: CATATONIA
     Dosage: 100 MG; BID; PO
     Route: 048
  2. AMANTADINE HYDROCHLORIDE [Suspect]
     Indication: FRONTOTEMPORAL DEMENTIA
     Dosage: 100 MG; BID; PO
     Route: 048
  3. MEMANTINE [Concomitant]
  4. DONEPEZIL HCL [Concomitant]
  5. OLANZAPINE [Concomitant]

REACTIONS (14)
  - ABNORMAL BEHAVIOUR [None]
  - AGITATION [None]
  - DELUSION OF GRANDEUR [None]
  - DISINHIBITION [None]
  - DRUG INTERACTION [None]
  - HALLUCINATIONS, MIXED [None]
  - IMPULSIVE BEHAVIOUR [None]
  - INCOHERENT [None]
  - MENTAL STATUS CHANGES [None]
  - PRESSURE OF SPEECH [None]
  - PSYCHOTIC DISORDER [None]
  - SPEECH DISORDER [None]
  - STEREOTYPY [None]
  - TANGENTIALITY [None]
